FAERS Safety Report 21634937 (Version 1)
Quarter: 2022Q4

REPORT INFORMATION
  Report Type: Spontaneous
  Country: US (occurrence: None)
  Receive Date: 20221123
  Receipt Date: 20221123
  Transmission Date: 20230112
  Serious: No
  Sender: FDA-Public Use
  Company Number: US-USAntibiotics-000091

PATIENT
  Age: 74 Year
  Sex: Female

DRUGS (3)
  1. AUGMENTIN [Suspect]
     Active Substance: AMOXICILLIN\CLAVULANATE POTASSIUM
     Indication: Fatigue
     Dosage: 875 MG
     Dates: end: 20221101
  2. CABOMETYX [Suspect]
     Active Substance: CABOZANTINIB S-MALATE
     Indication: Thyroid cancer
     Dosage: 40 MG, QD ORAL
     Route: 048
     Dates: start: 20220907
  3. AUGMENTIN [Suspect]
     Active Substance: AMOXICILLIN\CLAVULANATE POTASSIUM
     Indication: Malaise
     Dosage: 875 MG
     Dates: end: 20221101

REACTIONS (1)
  - Skin ulcer [Unknown]
